FAERS Safety Report 24019080 (Version 1)
Quarter: 2024Q2

REPORT INFORMATION
  Report Type: Spontaneous
  Country: US (occurrence: None)
  Receive Date: 20240627
  Receipt Date: 20240627
  Transmission Date: 20240716
  Serious: Yes (Other)
  Sender: FDA-Public Use
  Company Number: US-Unichem Pharmaceuticals (USA) Inc-UCM202406-000793

PATIENT
  Age: 74 Year
  Sex: Female

DRUGS (3)
  1. AMIODARONE HYDROCHLORIDE [Suspect]
     Active Substance: AMIODARONE HYDROCHLORIDE
     Indication: Atrial fibrillation
     Dosage: UNKNOWN
     Route: 040
  2. DILTIAZEM [Concomitant]
     Active Substance: DILTIAZEM
     Indication: Atrial fibrillation
     Dosage: UNKNOWN
  3. METOPROLOL TARTRATE [Concomitant]
     Active Substance: METOPROLOL TARTRATE
     Indication: Atrial fibrillation
     Dosage: UNKNOWN

REACTIONS (15)
  - Condition aggravated [Unknown]
  - Encephalopathy [Unknown]
  - Thyrotoxic crisis [Unknown]
  - Fall [Unknown]
  - Lactic acidosis [Unknown]
  - Faeces discoloured [Unknown]
  - Lethargy [Unknown]
  - Aortic stenosis [Unknown]
  - Liver function test abnormal [Unknown]
  - Hypotension [Unknown]
  - Acute kidney injury [Unknown]
  - Tachycardia [Unknown]
  - Drug ineffective [Unknown]
  - Product use in unapproved indication [Unknown]
  - Product use issue [Unknown]
